APPROVED DRUG PRODUCT: LAMOTRIGINE
Active Ingredient: LAMOTRIGINE
Strength: 100MG
Dosage Form/Route: TABLET, ORALLY DISINTEGRATING;ORAL
Application: A206382 | Product #003 | TE Code: AB
Applicant: SCIEGEN PHARMACEUTICALS INC
Approved: Jun 17, 2016 | RLD: No | RS: No | Type: RX